FAERS Safety Report 15386759 (Version 2)
Quarter: 2018Q3

REPORT INFORMATION
  Report Type: Spontaneous
  Country: BE (occurrence: BE)
  Receive Date: 20180914
  Receipt Date: 20180928
  Transmission Date: 20181010
  Serious: Yes (Death)
  Sender: FDA-Public Use
  Company Number: BE-ASTRAZENECA-2018SE87287

PATIENT
  Age: 21708 Day
  Sex: Male
  Weight: 56 kg

DRUGS (5)
  1. PANTOPRAZOL [Concomitant]
     Active Substance: PANTOPRAZOLE SODIUM
  2. LYNPARZA [Suspect]
     Active Substance: OLAPARIB
     Indication: BRCA1 GENE MUTATION
     Dosage: OF 2 TIMES 4 CAPSULES A DAY AT A TOTAL DOSE OF 600 MG.
     Route: 048
     Dates: start: 20180803
  3. TRAMADOL. [Concomitant]
     Active Substance: TRAMADOL
  4. MEDROL [Concomitant]
     Active Substance: METHYLPREDNISOLONE
  5. RIVAROXABAN [Concomitant]
     Active Substance: RIVAROXABAN

REACTIONS (6)
  - Ascites [Recovered/Resolved]
  - Product use in unapproved indication [Unknown]
  - Abdominal pain [Unknown]
  - Off label use [Unknown]
  - Drug dose omission [Unknown]
  - Death [Fatal]

NARRATIVE: CASE EVENT DATE: 20180420
